FAERS Safety Report 4433644-1 (Version None)
Quarter: 2004Q3

REPORT INFORMATION
  Report Type: 
  Country: None (occurrence: None)
  Receive Date: 20040824
  Receipt Date: 20040810
  Transmission Date: 20050211
  Serious: Yes (Congenital Anomaly)
  Sender: FDA-Public Use
  Company Number: 2004-BP-05705BP

PATIENT
  Age: 27 Year
  Sex: Female

DRUGS (4)
  1. VIRAMUNE [Suspect]
     Indication: HIV INFECTION
     Dosage: 400 MG, PO
     Route: 048
     Dates: start: 20031219
  2. VIREAD [Suspect]
     Indication: HIV INFECTION
     Dosage: PO
     Route: 048
     Dates: start: 20030301
  3. EPIVIR [Suspect]
     Indication: HIV INFECTION
     Dosage: 300 MG , PO
     Route: 048
     Dates: start: 20030301
  4. SUSTIVA [Suspect]
     Indication: HIV INFECTION
     Dosage: 600 MG , PO
     Route: 048
     Dates: start: 20030301, end: 20031219

REACTIONS (4)
  - CAESAREAN SECTION [None]
  - CYTOMEGALOVIRUS INFECTION [None]
  - DRUG EXPOSURE DURING PREGNANCY [None]
  - GESTATIONAL DIABETES [None]
